FAERS Safety Report 9316372 (Version 1)
Quarter: 2012Q4

REPORT INFORMATION
  Report Type: Spontaneous
  Country: JP (occurrence: None)
  Receive Date: 20121114
  Receipt Date: 20121114
  Transmission Date: 20130627
  Serious: Yes (Death, Hospitalization)
  Sender: FDA-Public Use
  Company Number: JP-2012-3542

PATIENT
  Age: 70 Year
  Sex: Female

DRUGS (4)
  1. NAVELBINE (VINORELBINE TARTRATE) INFUSION [Suspect]
     Indication: LUNG CANCER
     Route: 042
     Dates: start: 2005, end: 2005
  2. CISPLATIN (CISPLATIN) (5 MILLIGRAM) (CISPLATIN) [Suspect]
     Dates: start: 2005, end: 2005
  3. CARBOPLATIN (CARBOPLATIN) [Suspect]
     Dates: start: 2006, end: 2006
  4. PACLITAXEL (PACLITAXEL) [Suspect]
     Dates: start: 2006, end: 2006

REACTIONS (10)
  - Diffuse large B-cell lymphoma [None]
  - Blood lactate dehydrogenase increased [None]
  - Lung carcinoma cell type unspecified recurrent [None]
  - Nausea [None]
  - Diarrhoea [None]
  - No therapeutic response [None]
  - Respiratory disorder [None]
  - Lymphocytic infiltration [None]
  - Liver disorder [None]
  - Spleen disorder [None]
